FAERS Safety Report 18038114 (Version 1)
Quarter: 2020Q3

REPORT INFORMATION
  Report Type: Report from Study
  Country: US (occurrence: US)
  Receive Date: 20200717
  Receipt Date: 20200717
  Transmission Date: 20201103
  Serious: Yes (Other)
  Sender: FDA-Public Use
  Company Number: US-NALPROPION PHARMACEUTICALS INC.-2020-010574

PATIENT
  Sex: Female

DRUGS (4)
  1. CONTRAVE [Suspect]
     Active Substance: BUPROPION HYDROCHLORIDE\NALTREXONE HYDROCHLORIDE
     Indication: WEIGHT CONTROL
     Dosage: ONE TABLET A DAY (FIRST WEEK)
     Route: 048
     Dates: start: 20200205, end: 202002
  2. CONTRAVE [Suspect]
     Active Substance: BUPROPION HYDROCHLORIDE\NALTREXONE HYDROCHLORIDE
     Dosage: FOUR TABLETS A DAY (STOPPED SIX DAYS AGO AT THE TIME OF REPORT)
     Route: 048
     Dates: start: 2020, end: 202006
  3. CONTRAVE [Suspect]
     Active Substance: BUPROPION HYDROCHLORIDE\NALTREXONE HYDROCHLORIDE
     Dosage: ONE TABLET TWICE A DAY (NEXT WEEK)
     Route: 048
     Dates: start: 202002, end: 2020
  4. BUPROPION HYDROCHLORIDE XL [Concomitant]
     Active Substance: BUPROPION HYDROCHLORIDE
     Indication: PRODUCT USED FOR UNKNOWN INDICATION
     Dosage: UNK
     Route: 065

REACTIONS (18)
  - Pelvic floor dysfunction [Recovering/Resolving]
  - Nerve compression [Recovering/Resolving]
  - Abdominal distension [Recovering/Resolving]
  - Product label issue [Unknown]
  - Patient dissatisfaction with treatment [Unknown]
  - Drug titration error [Unknown]
  - Skin discolouration [Recovering/Resolving]
  - Nausea [Recovered/Resolved]
  - Constipation [Recovered/Resolved]
  - Back pain [Recovering/Resolving]
  - Fall [Recovering/Resolving]
  - Dysuria [Recovering/Resolving]
  - Dizziness [Recovered/Resolved]
  - Vomiting [Recovered/Resolved]
  - Contraindicated product administered [Unknown]
  - Intervertebral disc protrusion [Recovering/Resolving]
  - Bladder discomfort [Recovering/Resolving]
  - Therapy interrupted [Unknown]

NARRATIVE: CASE EVENT DATE: 2020
